FAERS Safety Report 4347977-0 (Version None)
Quarter: 2004Q2

REPORT INFORMATION
  Report Type: 
  Country: None (occurrence: None)
  Receive Date: 20040427
  Receipt Date: 20020104
  Transmission Date: 20050107
  Serious: Yes (Hospitalization, Other)
  Sender: FDA-Public Use
  Company Number: US-BRISTOL-MYERS SQUIBB COMPANY-11651726

PATIENT

DRUGS (6)
  1. VIDEX [Suspect]
     Dosage: EXPOSURE BEGAN DURING GESTATION.
     Route: 064
     Dates: start: 20001101, end: 20010423
  2. COMBIVIR [Suspect]
     Dosage: EXPOSURE BEGAN DURING GESTATION.
     Route: 064
     Dates: start: 20001101, end: 20010423
  3. VIRACEPT [Suspect]
     Dosage: EXPOSURE BEGAN DURING GESTATION.
     Route: 064
     Dates: start: 20001101, end: 20010423
  4. BACTRIM [Concomitant]
     Dosage: EXPOSURE BEGAN DURING GESTATION.
     Route: 064
  5. IRON [Concomitant]
     Dosage: EXPOSURE BEGAN DURING GESTATION.
     Route: 064
  6. RETROVIR [Concomitant]
     Route: 048

REACTIONS (7)
  - BLOOD AMYLASE INCREASED [None]
  - BLOOD LACTIC ACID INCREASED [None]
  - BLOOD PYRUVIC ACID DECREASED [None]
  - GLAUCOMA [None]
  - HYPOKINESIA [None]
  - LATE DEVELOPER [None]
  - PREGNANCY [None]
